FAERS Safety Report 23037445 (Version 1)
Quarter: 2023Q4

REPORT INFORMATION
  Report Type: Report from Study
  Country: JP (occurrence: JP)
  Receive Date: 20231006
  Receipt Date: 20231006
  Transmission Date: 20240110
  Serious: Yes (Other)
  Sender: FDA-Public Use
  Company Number: JP-Merck Healthcare KGaA-9265518

PATIENT
  Age: 81 Year
  Sex: Male
  Weight: 53 kg

DRUGS (3)
  1. BAVENCIO [Suspect]
     Active Substance: AVELUMAB
     Indication: Transitional cell carcinoma
     Dosage: 3 VIALS
     Route: 041
     Dates: start: 20210402
  2. ACETAMINOPHEN [Concomitant]
     Active Substance: ACETAMINOPHEN
     Indication: Premedication
     Route: 048
     Dates: start: 20210402, end: 20210430
  3. OLOPATADINE HYDROCHLORIDE [Concomitant]
     Active Substance: OLOPATADINE HYDROCHLORIDE
     Indication: Premedication
     Route: 048
     Dates: start: 20210402, end: 20210528

REACTIONS (2)
  - Interstitial lung disease [Recovering/Resolving]
  - Lipase increased [Recovered/Resolved]

NARRATIVE: CASE EVENT DATE: 20210514
